FAERS Safety Report 5014556-1 (Version None)
Quarter: 2006Q2

REPORT INFORMATION
  Report Type: 
  Country: None (occurrence: None)
  Receive Date: 20060531
  Receipt Date: 20060426
  Transmission Date: 20061013
  Serious: Yes (Hospitalization, Other)
  Sender: FDA-Public Use
  Company Number: US-AVENTIS-200613858US

PATIENT
  Sex: Female

DRUGS (15)
  1. ARAVA [Suspect]
     Indication: RHEUMATOID ARTHRITIS
  2. LEFLUNOMIDE [Suspect]
     Indication: RHEUMATOID ARTHRITIS
     Dosage: DOSE: UNK
  3. ASPIRIN [Concomitant]
     Dosage: DOSE: UNK
  4. PREDNISONE [Concomitant]
     Dosage: DOSE: 2-3
  5. HYZAAR [Concomitant]
     Dosage: DOSE: 100/25
  6. TOPROL-XL [Concomitant]
  7. TOPROL-XL [Concomitant]
  8. AMBIEN [Concomitant]
  9. LIPITOR [Concomitant]
  10. XANAX [Concomitant]
     Dosage: DOSE: 2-3/DAY
  11. VICODIN [Concomitant]
  12. LASIX [Concomitant]
  13. BENADRYL [Concomitant]
     Dosage: DOSE: UNK
  14. NEXIUM [Concomitant]
     Dosage: DOSE: UNK
  15. METHOTREXATE [Concomitant]
     Dosage: DOSE: UNK

REACTIONS (27)
  - ALOPECIA [None]
  - ANXIETY [None]
  - BLOOD GLUCOSE INCREASED [None]
  - BLOOD PRESSURE INCREASED [None]
  - CHEST PAIN [None]
  - CHROMATURIA [None]
  - CONSTIPATION [None]
  - CORONARY ARTERY DISEASE [None]
  - DIARRHOEA [None]
  - DIZZINESS [None]
  - FATIGUE [None]
  - FIBROMYALGIA [None]
  - HIATUS HERNIA [None]
  - JOINT SWELLING [None]
  - MENTAL IMPAIRMENT [None]
  - MUSCLE SPASMS [None]
  - MYOCARDIAL INFARCTION [None]
  - OSTEOARTHRITIS [None]
  - PAIN [None]
  - PARAESTHESIA [None]
  - PRURITUS [None]
  - RASH [None]
  - SKIN EXFOLIATION [None]
  - SKIN NODULE [None]
  - SWELLING [None]
  - THYROID CYST [None]
  - YELLOW SKIN [None]
